FAERS Safety Report 11224611 (Version 2)
Quarter: 2015Q2

REPORT INFORMATION
  Report Type: Spontaneous
  Country: GR (occurrence: None)
  Receive Date: 20150625
  Receipt Date: 20150626
  Transmission Date: 20150821
  Serious: Yes (Hospitalization, Other)
  Sender: FDA-Public Use
  Company Number: GR2015GSK086126

PATIENT
  Sex: Male

DRUGS (7)
  1. VINCRISTINE SULFATE (VINCRISTINE SULFATE) [Concomitant]
     Active Substance: VINCRISTINE SULFATE
     Indication: LYMPHOMA
  2. RITUXIMAB [Concomitant]
     Active Substance: RITUXIMAB
     Indication: LYMPHOMA
  3. NONE [Concomitant]
     Active Substance: UNSPECIFIED INGREDIENT
     Indication: HIV INFECTION
  4. TRUVADA [Suspect]
     Active Substance: EMTRICITABINE\TENOFOVIR DISOPROXIL FUMARATE
     Indication: HIV INFECTION
     Dates: start: 20150316
  5. CORTISONE ACETATE. [Concomitant]
     Active Substance: CORTISONE ACETATE
     Indication: LYMPHOMA
  6. CYCLOPHOSPHAMIDE. [Concomitant]
     Active Substance: CYCLOPHOSPHAMIDE
     Indication: LYMPHOMA
  7. TIVICAY [Suspect]
     Active Substance: DOLUTEGRAVIR SODIUM
     Indication: HIV INFECTION

REACTIONS (2)
  - Leukopenia [None]
  - Neutropenia [None]

NARRATIVE: CASE EVENT DATE: 201506
